FAERS Safety Report 10128715 (Version 1)
Quarter: 2014Q2

REPORT INFORMATION
  Report Type: Spontaneous
  Country: IT (occurrence: IT)
  Receive Date: 20140428
  Receipt Date: 20140428
  Transmission Date: 20141212
  Serious: Yes (Hospitalization)
  Sender: FDA-Public Use
  Company Number: IT-JNJFOC-20140415711

PATIENT
  Age: 77 Year
  Sex: Female

DRUGS (11)
  1. XARELTO [Suspect]
     Indication: CEREBROVASCULAR ACCIDENT PROPHYLAXIS
     Route: 048
     Dates: start: 20140331, end: 20140404
  2. XARELTO [Suspect]
     Indication: ATRIAL FIBRILLATION
     Route: 048
     Dates: start: 20140331, end: 20140404
  3. ZYLORIC [Concomitant]
     Route: 065
  4. LUVION [Concomitant]
     Route: 065
  5. ATEM [Concomitant]
     Route: 065
  6. LASIX [Concomitant]
     Route: 065
  7. NORVASC [Concomitant]
     Route: 065
  8. CLENIL [Concomitant]
     Route: 065
  9. BRONCOVALEAS [Concomitant]
     Route: 065
  10. TRIATEC [Concomitant]
     Route: 065
  11. TAVOR [Concomitant]
     Route: 065

REACTIONS (2)
  - Urticaria [Recovered/Resolved]
  - Pruritus [Recovered/Resolved]
